FAERS Safety Report 6700378-X (Version None)
Quarter: 2010Q2

REPORT INFORMATION
  Report Type: 
  Country: None (occurrence: None)
  Receive Date: 20100428
  Receipt Date: 20100421
  Transmission Date: 20101027
  Serious: Yes (Disabling)
  Sender: FDA-Public Use
  Company Number: FR-ROCHE-696460

PATIENT
  Sex: Female
  Weight: 53 kg

DRUGS (2)
  1. BONIVA [Suspect]
     Indication: OSTEOPENIA
     Route: 048
     Dates: start: 20100109, end: 20100109
  2. CALTRATE + VIT D3 [Concomitant]
     Dosage: DOSE: 2
     Route: 048
     Dates: start: 20100109

REACTIONS (4)
  - ARTHRALGIA [None]
  - ERECTILE DYSFUNCTION [None]
  - MUSCULOSKELETAL PAIN [None]
  - PAIN IN EXTREMITY [None]
